FAERS Safety Report 25588669 (Version 3)
Quarter: 2025Q3

REPORT INFORMATION
  Report Type: Report from Study
  Country: EU (occurrence: EU)
  Receive Date: 20250722
  Receipt Date: 20250819
  Transmission Date: 20251020
  Serious: Yes (Other)
  Sender: ABBVIE
  Company Number: EU-ABBVIE-6370889

PATIENT
  Age: 77 Year
  Sex: Female

DRUGS (2)
  1. OZURDEX [Suspect]
     Active Substance: DEXAMETHASONE
     Indication: Cystoid macular oedema
     Route: 050
     Dates: start: 20250627, end: 20250627
  2. OZURDEX [Suspect]
     Active Substance: DEXAMETHASONE
     Route: 050
     Dates: start: 20241018, end: 20241018

REACTIONS (16)
  - Retinal haemorrhage [Unknown]
  - Discomfort [Unknown]
  - Visual impairment [Unknown]
  - Non-infectious endophthalmitis [Unknown]
  - Eye inflammation [Unknown]
  - Hypopyon [Unknown]
  - Vertebrobasilar artery dissection [Unknown]
  - Vitreous degeneration [Unknown]
  - Vitreous disorder [Unknown]
  - Photophobia [Unknown]
  - Vitritis [Unknown]
  - Noninfective retinitis [Unknown]
  - Eye disorder [Unknown]
  - Visual acuity reduced [Unknown]
  - Uveitis [Unknown]
  - Endophthalmitis [Unknown]

NARRATIVE: CASE EVENT DATE: 20250601
